APPROVED DRUG PRODUCT: ABIRATERONE ACETATE
Active Ingredient: ABIRATERONE ACETATE
Strength: 250MG
Dosage Form/Route: TABLET;ORAL
Application: A208432 | Product #001
Applicant: TEVA PHARMACEUTICALS USA INC
Approved: Oct 31, 2018 | RLD: No | RS: No | Type: DISCN